FAERS Safety Report 25986514 (Version 1)
Quarter: 2025Q4

REPORT INFORMATION
  Report Type: Other
  Country: US (occurrence: US)
  Receive Date: 20251031
  Receipt Date: 20251031
  Transmission Date: 20260119
  Serious: No
  Sender: TRAVERE THERAPEUTICS
  Company Number: US-TRAVERE-2025TVT01814

PATIENT
  Age: 61 Year
  Sex: Female

DRUGS (2)
  1. FILSPARI [Suspect]
     Active Substance: SPARSENTAN
     Indication: IgA nephropathy
     Route: 048
  2. FILSPARI [Suspect]
     Active Substance: SPARSENTAN
     Dosage: CUTTING 400 MG TABLETS IN HALF
     Route: 048
     Dates: start: 20250920

REACTIONS (4)
  - Hypotension [None]
  - Feeling abnormal [Unknown]
  - Headache [Unknown]
  - Off label use [Unknown]
